FAERS Safety Report 18674269 (Version 2)
Quarter: 2021Q1

REPORT INFORMATION
  Report Type: Spontaneous
  Country: US (occurrence: US)
  Receive Date: 20201229
  Receipt Date: 20210201
  Transmission Date: 20210419
  Serious: No
  Sender: FDA-Public Use
  Company Number: US-ASTRAZENECA-2020SF67509

PATIENT
  Sex: Male

DRUGS (3)
  1. ATENOLOL. [Concomitant]
     Active Substance: ATENOLOL
  2. BYDUREON BCISE [Suspect]
     Active Substance: EXENATIDE
     Indication: TYPE 2 DIABETES MELLITUS
     Route: 058
  3. LISINOPRIL AND HYDROCHLOROTHIAZIDE [Concomitant]
     Active Substance: HYDROCHLOROTHIAZIDE\LISINOPRIL

REACTIONS (4)
  - Wrong technique in product usage process [Unknown]
  - Product dose omission issue [Unknown]
  - Device issue [Unknown]
  - Injection site haemorrhage [Unknown]
